FAERS Safety Report 7601379-X (Version None)
Quarter: 2011Q2

REPORT INFORMATION
  Report Type: 
  Country: None (occurrence: None)
  Receive Date: 20110629
  Receipt Date: 20110124
  Transmission Date: 20111010
  Serious: Yes (Other)
  Sender: FDA-Public Use
  Company Number: WAES 1004USA04427

PATIENT
  Age: 61 Year
  Sex: Female

DRUGS (2)
  1. LIPITOR [Suspect]
     Dosage: 20 MG/PO
     Route: 048
  2. HYZAAR [Suspect]
     Dosage: 100-25 MG/PO
     Route: 048

REACTIONS (2)
  - MUSCLE SPASMS [None]
  - MALAISE [None]
